FAERS Safety Report 19626095 (Version 1)
Quarter: 2021Q3

REPORT INFORMATION
  Report Type: Report from Study
  Country: US (occurrence: US)
  Receive Date: 20210728
  Receipt Date: 20210728
  Transmission Date: 20211014
  Serious: Yes (Death, Life-Threatening, Hospitalization, Other)
  Sender: FDA-Public Use
  Company Number: US-EXELIXIS-XL18421040523

PATIENT

DRUGS (2)
  1. XL184 [Suspect]
     Active Substance: CABOZANTINIB
     Indication: RENAL CELL CARCINOMA
     Dosage: 40 MG, QD
     Route: 048
     Dates: start: 20200811, end: 20210514
  2. NIVOLUMAB [Suspect]
     Active Substance: NIVOLUMAB
     Indication: RENAL CELL CARCINOMA
     Dosage: 240 MG, Q2WEEKS
     Route: 042
     Dates: start: 20200811, end: 20201020

REACTIONS (5)
  - Pulmonary embolism [Unknown]
  - Pericardial effusion [Unknown]
  - Cardiac failure [Fatal]
  - Pyrexia [Unknown]
  - Back pain [Recovering/Resolving]

NARRATIVE: CASE EVENT DATE: 20210514
